FAERS Safety Report 5208725-5 (Version None)
Quarter: 2007Q1

REPORT INFORMATION
  Report Type: 
  Country: None (occurrence: None)
  Receive Date: 20070116
  Receipt Date: 20070105
  Transmission Date: 20070707
  Serious: Yes (Hospitalization)
  Sender: FDA-Public Use
  Company Number: FR-BAYER-200611075BFR

PATIENT
  Age: 73 Year
  Sex: Male
  Weight: 92 kg

DRUGS (12)
  1. SORAFENIB [Suspect]
     Indication: METASTATIC RENAL CELL CARCINOMA
     Dosage: TOTAL DAILY DOSE: 800 MG  UNIT DOSE: 200 MG
     Route: 048
     Dates: start: 20050704, end: 20050904
  2. SORAFENIB [Suspect]
     Dosage: TOTAL DAILY DOSE: 800 MG  UNIT DOSE: 200 MG
     Route: 048
     Dates: start: 20050905, end: 20051030
  3. SORAFENIB [Suspect]
     Dosage: TOTAL DAILY DOSE: 800 MG  UNIT DOSE: 200 MG
     Route: 048
     Dates: start: 20051031, end: 20051226
  4. SORAFENIB [Suspect]
     Dosage: TOTAL DAILY DOSE: 800 MG  UNIT DOSE: 200 MG
     Route: 048
     Dates: start: 20060424, end: 20060620
  5. SORAFENIB [Suspect]
     Dosage: TOTAL DAILY DOSE: 800 MG  UNIT DOSE: 200 MG
     Route: 048
     Dates: start: 20060823
  6. SORAFENIB [Suspect]
     Dosage: TOTAL DAILY DOSE: 800 MG  UNIT DOSE: 200 MG
     Route: 048
     Dates: start: 20060620, end: 20060823
  7. SORAFENIB [Suspect]
     Dosage: TOTAL DAILY DOSE: 800 MG  UNIT DOSE: 200 MG
     Route: 048
     Dates: start: 20051227
  8. NOVONORM [Concomitant]
     Indication: DIABETES MELLITUS
     Dates: start: 20040404
  9. ASPIRIN [Concomitant]
     Indication: HYPERTENSION
     Dates: start: 20040904
  10. HYPERIUM [Concomitant]
     Indication: HYPERTENSION
     Dates: start: 20050121
  11. IMODIUM [Concomitant]
     Indication: DIARRHOEA
     Dates: start: 20060801
  12. OMEPRAZOLE [Concomitant]
     Indication: PROPHYLAXIS
     Dates: start: 20061016

REACTIONS (1)
  - CORONARY ARTERY INSUFFICIENCY [None]
